FAERS Safety Report 17465985 (Version 1)
Quarter: 2020Q1

REPORT INFORMATION
  Report Type: Spontaneous
  Country: US (occurrence: US)
  Receive Date: 20200227
  Receipt Date: 20200227
  Transmission Date: 20200409
  Serious: No
  Sender: FDA-Public Use
  Company Number: US-GW PHARMA-202002USGW00678

PATIENT

DRUGS (1)
  1. EPIDIOLEX [Suspect]
     Active Substance: CANNABIDIOL
     Indication: SEIZURE
     Dosage: 14.28 MG/KG/DAY, 460 MILLIGRAM, BID
     Route: 048

REACTIONS (4)
  - Dyspepsia [Unknown]
  - Crying [Unknown]
  - Diarrhoea [Unknown]
  - Abnormal faeces [Unknown]
